FAERS Safety Report 17056481 (Version 2)
Quarter: 2019Q4

REPORT INFORMATION
  Report Type: Spontaneous
  Country: US (occurrence: US)
  Receive Date: 20191121
  Receipt Date: 20191218
  Transmission Date: 20200122
  Serious: No
  Sender: FDA-Public Use
  Company Number: US-BRISTOL-MYERS SQUIBB COMPANY-BMS-2019-112424

PATIENT
  Age: 43 Year
  Sex: Female

DRUGS (1)
  1. ORENCIA [Suspect]
     Active Substance: ABATACEPT
     Indication: DEPRESSION
     Dosage: 125 MILLIGRAM, QWK
     Route: 058
     Dates: start: 20190419

REACTIONS (4)
  - Intentional product use issue [Unknown]
  - Sinus congestion [Unknown]
  - Nasopharyngitis [Recovering/Resolving]
  - Nasal mucosal discolouration [Unknown]

NARRATIVE: CASE EVENT DATE: 20191109
